FAERS Safety Report 8617445-6 (Version None)
Quarter: 2012Q3

REPORT INFORMATION
  Report Type: 
  Country: None (occurrence: None)
  Receive Date: 20120824
  Receipt Date: 20111223
  Transmission Date: 20120928
  Serious: No
  Sender: FDA-Public Use
  Company Number: US-ASTRAZENECA-2011SE63702

PATIENT
  Age: 60 Year
  Sex: Female

DRUGS (2)
  1. PRIMATENE MIST [Suspect]
     Route: 065
  2. SYMBICORT [Suspect]
     Dosage: TOTAL DAILY DOSAGE 160/4.5MCG DAILY
     Route: 055

REACTIONS (4)
  - DYSPEPSIA [None]
  - DRUG DOSE OMISSION [None]
  - ADVERSE EVENT [None]
  - THROAT IRRITATION [None]
